FAERS Safety Report 9702351 (Version 1)
Quarter: 2013Q4

REPORT INFORMATION
  Report Type: Spontaneous
  Country: US (occurrence: None)
  Receive Date: 20131119
  Receipt Date: 20131119
  Transmission Date: 20140711
  Serious: Yes (Hospitalization, Other)
  Sender: FDA-Public Use
  Company Number: 2013P1020869

PATIENT
  Age: 54 Year
  Sex: Male

DRUGS (3)
  1. DIPHENHYDRAMINE [Suspect]
  2. AMITRIPTYLINE [Suspect]
  3. ACETAMINOPHEN [Suspect]

REACTIONS (2)
  - Aspartate aminotransferase increased [None]
  - Cardiotoxicity [None]
